FAERS Safety Report 13068760 (Version 2)
Quarter: 2017Q1

REPORT INFORMATION
  Report Type: Report from Study
  Country: US (occurrence: US)
  Receive Date: 20161228
  Receipt Date: 20170120
  Transmission Date: 20170428
  Serious: Yes (Other)
  Sender: FDA-Public Use
  Company Number: US-GILEAD-2016-0250481

PATIENT
  Age: 46 Year
  Sex: Female
  Weight: 80.45 kg

DRUGS (54)
  1. PANTOPRAZOLE SODIUM. [Concomitant]
     Active Substance: PANTOPRAZOLE SODIUM
  2. ONDANSETRON [Concomitant]
     Active Substance: ONDANSETRON
  3. LAMIVUDINE. [Concomitant]
     Active Substance: LAMIVUDINE
  4. INTELENCE [Concomitant]
     Active Substance: ETRAVIRINE
  5. CHLOROTHIAZIDE. [Concomitant]
     Active Substance: CHLOROTHIAZIDE
  6. LANTUS [Concomitant]
     Active Substance: INSULIN GLARGINE
  7. UPTRAVI [Concomitant]
     Active Substance: SELEXIPAG
  8. ABACAVIR SULFATE. [Concomitant]
     Active Substance: ABACAVIR SULFATE
  9. SUDAFED [Concomitant]
     Active Substance: PSEUDOEPHEDRINE HYDROCHLORIDE
  10. FUROSEMIDE. [Concomitant]
     Active Substance: FUROSEMIDE
  11. FLONASE                            /00908302/ [Concomitant]
     Active Substance: MOMETASONE FUROATE
  12. COLCHICINE. [Concomitant]
     Active Substance: COLCHICINE
  13. AMITIZA [Concomitant]
     Active Substance: LUBIPROSTONE
  14. ALLEGRA ALLERGY [Concomitant]
     Active Substance: FEXOFENADINE HYDROCHLORIDE
  15. ACYCLOVIR                          /00587301/ [Concomitant]
     Active Substance: ACYCLOVIR
  16. STOOL SOFTENER (DOCUSATE CALCIUM) [Concomitant]
     Active Substance: DOCUSATE CALCIUM
  17. VENTAVIS [Concomitant]
     Active Substance: ILOPROST
  18. TORSEMIDE. [Concomitant]
     Active Substance: TORSEMIDE
  19. TIVICAY [Concomitant]
     Active Substance: DOLUTEGRAVIR SODIUM
  20. SENNA                              /00142201/ [Concomitant]
     Active Substance: SENNA LEAF
  21. OLOPATADINE HCL [Concomitant]
     Active Substance: OLOPATADINE HYDROCHLORIDE
  22. ATRIPLA [Concomitant]
     Active Substance: EFAVIRENZ\EMTRICITABINE\TENOFOVIR DISOPROXIL FUMARATE
  23. ALLOPURINOL. [Concomitant]
     Active Substance: ALLOPURINOL
  24. NEPHRO-VITE RX [Concomitant]
  25. AMBRISENTAN [Suspect]
     Active Substance: AMBRISENTAN
     Indication: HIV INFECTION
  26. SPIRONOLACTONE. [Concomitant]
     Active Substance: SPIRONOLACTONE
  27. PRILOSEC [Concomitant]
     Active Substance: OMEPRAZOLE MAGNESIUM
  28. POTASSIUM CHLORIDE. [Concomitant]
     Active Substance: POTASSIUM CHLORIDE
  29. MODAFINIL. [Concomitant]
     Active Substance: MODAFINIL
  30. LAMOTRIGINE. [Concomitant]
     Active Substance: LAMOTRIGINE
  31. COLACE [Concomitant]
     Active Substance: DOCUSATE SODIUM
  32. HUMALOG [Concomitant]
     Active Substance: INSULIN LISPRO
  33. PROTONIX                           /00661201/ [Concomitant]
     Active Substance: OMEPRAZOLE
  34. METOLAZONE. [Concomitant]
     Active Substance: METOLAZONE
  35. METFORMIN HCL [Concomitant]
     Active Substance: METFORMIN HYDROCHLORIDE
  36. PSORIASIN                          /00325301/ [Concomitant]
  37. CALCIUM ACETATE. [Concomitant]
     Active Substance: CALCIUM ACETATE
  38. AMBRISENTAN [Suspect]
     Active Substance: AMBRISENTAN
     Indication: PULMONARY HYPERTENSION
     Dosage: 10 MG, QD
     Route: 048
  39. LYRICA [Concomitant]
     Active Substance: PREGABALIN
  40. FLUCONAZOLE. [Concomitant]
     Active Substance: FLUCONAZOLE
  41. FAMOTIDINE. [Concomitant]
     Active Substance: FAMOTIDINE
  42. AZELASTINE HCL [Concomitant]
     Active Substance: AZELASTINE HYDROCHLORIDE
  43. VITALINE                           /01490701/ [Concomitant]
  44. RENVELA [Concomitant]
     Active Substance: SEVELAMER CARBONATE
  45. HUMULIN NOS [Concomitant]
     Active Substance: INSULIN HUMAN
  46. DOXYCYCLINE HYCLATE. [Concomitant]
     Active Substance: DOXYCYCLINE HYCLATE
  47. BACTRIM DS [Concomitant]
     Active Substance: SULFAMETHOXAZOLE\TRIMETHOPRIM
  48. IPRATROPIUM BROMIDE. [Concomitant]
     Active Substance: IPRATROPIUM BROMIDE
  49. ADVAIR HFA [Concomitant]
     Active Substance: FLUTICASONE PROPIONATE\SALMETEROL XINAFOATE
  50. ZITHROMAX [Concomitant]
     Active Substance: AZITHROMYCIN DIHYDRATE
  51. XOPENEX HFA [Concomitant]
     Active Substance: LEVALBUTEROL TARTRATE
  52. SYMBICORT [Concomitant]
     Active Substance: BUDESONIDE\FORMOTEROL FUMARATE DIHYDRATE
  53. IRON [Concomitant]
     Active Substance: IRON
  54. HYDROMORPHONE HCL [Concomitant]
     Active Substance: HYDROMORPHONE HYDROCHLORIDE

REACTIONS (5)
  - Blood urine present [Recovered/Resolved]
  - Chronic kidney disease [Recovered/Resolved]
  - Blood pressure decreased [Recovered/Resolved]
  - Pollakiuria [Recovered/Resolved]
  - Dizziness [Recovered/Resolved]
